FAERS Safety Report 23794911 (Version 1)
Quarter: 2024Q2

REPORT INFORMATION
  Report Type: Spontaneous
  Country: CA (occurrence: CA)
  Receive Date: 20240429
  Receipt Date: 20240429
  Transmission Date: 20240715
  Serious: Yes (Other)
  Sender: FDA-Public Use
  Company Number: CA-B.Braun Medical Inc.-2156198

PATIENT
  Sex: Female

DRUGS (7)
  1. DEXTROSE [Suspect]
     Active Substance: DEXTROSE\DEXTROSE MONOHYDRATE
  2. MAGNESIUM SULFATE [Suspect]
     Active Substance: MAGNESIUM SULFATE\MAGNESIUM SULFATE HEPTAHYDRATE
  3. GENTAMICIN SULFATE [Suspect]
     Active Substance: GENTAMICIN SULFATE
  4. AZITHROMYCIN [Suspect]
     Active Substance: AZITHROMYCIN
  5. BETAMETHASONE [Suspect]
     Active Substance: BETAMETHASONE\BETAMETHASONE DIPROPIONATE
  6. ATOSIBAN [Suspect]
     Active Substance: ATOSIBAN
  7. AMPICILLIN [Suspect]
     Active Substance: AMPICILLIN

REACTIONS (5)
  - Delivery [Unknown]
  - Product use in unapproved indication [Unknown]
  - Premature delivery [Unknown]
  - Normal labour [Unknown]
  - Maternal exposure during pregnancy [Unknown]
